FAERS Safety Report 6851261-0 (Version None)
Quarter: 2010Q3

REPORT INFORMATION
  Report Type: 
  Country: None (occurrence: None)
  Receive Date: 20100717
  Receipt Date: 20080114
  Transmission Date: 20110219
  Serious: No
  Sender: FDA-Public Use
  Company Number: US-PFIZER INC-2008005308

PATIENT
  Sex: Female
  Weight: 113.63 kg

DRUGS (11)
  1. CHANTIX [Suspect]
     Indication: CARDIAC DISORDER
  2. GLUCOPHAGE [Concomitant]
  3. GLYBURIDE [Concomitant]
  4. ISOSORBIDE [Concomitant]
  5. TRICOR [Concomitant]
  6. PLAVIX [Concomitant]
  7. TOPROL-XL [Concomitant]
  8. ATACAND HCT [Concomitant]
  9. ACIPHEX [Concomitant]
  10. ACTOS [Concomitant]
  11. LIPITOR [Concomitant]

REACTIONS (3)
  - MALAISE [None]
  - NAUSEA [None]
  - OFF LABEL USE [None]
